FAERS Safety Report 4775255-4 (Version None)
Quarter: 2005Q3

REPORT INFORMATION
  Report Type: 
  Country: None (occurrence: None)
  Receive Date: 20050921
  Receipt Date: 20050609
  Transmission Date: 20060218
  Serious: Yes (Other)
  Sender: FDA-Public Use
  Company Number: US-MERCK-0506USA01878

PATIENT
  Age: 70 Year
  Sex: Female

DRUGS (4)
  1. VIOXX [Suspect]
     Indication: OSTEOARTHRITIS
     Route: 048
     Dates: start: 19990101, end: 20040101
  2. VIOXX [Suspect]
     Indication: ARTHRALGIA
     Route: 048
     Dates: start: 19990101, end: 20040101
  3. LOTREL [Concomitant]
     Indication: HYPERTENSION
     Route: 048
     Dates: start: 19980101
  4. ARICEPT [Concomitant]
     Indication: ARTHRITIS
     Route: 048

REACTIONS (22)
  - ABDOMINAL PAIN UPPER [None]
  - CEREBROVASCULAR ACCIDENT [None]
  - CHEST PAIN [None]
  - DRUG HYPERSENSITIVITY [None]
  - DYSPHAGIA [None]
  - ELECTROCARDIOGRAM ST-T CHANGE [None]
  - ELECTROCARDIOGRAM T WAVE INVERSION [None]
  - HAEMATEMESIS [None]
  - HAEMOGLOBIN DECREASED [None]
  - HEADACHE [None]
  - MOUTH HAEMORRHAGE [None]
  - MOUTH ULCERATION [None]
  - MUSCLE SPASMS [None]
  - NAUSEA [None]
  - OEDEMA PERIPHERAL [None]
  - ORAL SOFT TISSUE DISORDER [None]
  - PHARYNGEAL HAEMORRHAGE [None]
  - PHARYNGITIS [None]
  - RHINITIS ALLERGIC [None]
  - THROMBOSIS [None]
  - URTICARIA [None]
  - VAGINAL LESION [None]
